FAERS Safety Report 10060562 (Version 1)
Quarter: 2014Q2

REPORT INFORMATION
  Report Type: Spontaneous
  Country: None (occurrence: US)
  Receive Date: 20140404
  Receipt Date: 20140404
  Transmission Date: 20141212
  Serious: Yes (Other)
  Sender: FDA-Public Use
  Company Number: US-TEVA-472333USA

PATIENT
  Sex: Female

DRUGS (1)
  1. PROGESTERONE [Suspect]
     Indication: ENDOMETRIAL HYPERPLASIA
     Dosage: 400 MILLIGRAM DAILY;

REACTIONS (2)
  - Haemorrhage [Unknown]
  - Insomnia [Unknown]
